FAERS Safety Report 5849631-2 (Version None)
Quarter: 2008Q3

REPORT INFORMATION
  Report Type: 
  Country: None (occurrence: None)
  Receive Date: 20080819
  Receipt Date: 20080808
  Transmission Date: 20090109
  Serious: Yes (Hospitalization)
  Sender: FDA-Public Use
  Company Number: KR-AVENTIS-200816980GDDC

PATIENT
  Age: 63 Year
  Sex: Female

DRUGS (13)
  1. DOCETAXEL [Suspect]
     Indication: BREAST CANCER METASTATIC
     Route: 042
     Dates: start: 20080619, end: 20080619
  2. METRONIDAZOLE HCL [Concomitant]
     Route: 048
     Dates: start: 20080609, end: 20080626
  3. MEDILAC-S [Concomitant]
     Route: 048
     Dates: start: 20080609, end: 20080701
  4. ZANIDIP [Concomitant]
     Route: 048
     Dates: start: 20080610
  5. DUPHALAC                           /00163401/ [Concomitant]
     Route: 048
     Dates: start: 20080610, end: 20080626
  6. MAGNESIUM OXIDE [Concomitant]
     Route: 048
     Dates: start: 20080613, end: 20080701
  7. UNKNOWN DRUG [Concomitant]
     Route: 048
     Dates: start: 20080613, end: 20080701
  8. LANSOPRAZOLE [Concomitant]
     Route: 048
     Dates: start: 20080619, end: 20080701
  9. METOCLOPRAMIDE [Concomitant]
     Route: 042
     Dates: start: 20080619, end: 20080620
  10. CIMETIDINE [Concomitant]
     Route: 042
     Dates: start: 20080619, end: 20080619
  11. ONDASETRON                         /00955301/ [Concomitant]
     Route: 042
     Dates: start: 20080619, end: 20080619
  12. POLYVIDONE [Concomitant]
     Route: 048
     Dates: start: 20080619
  13. BENZYDAMINE HYDROCHLORIDE [Concomitant]
     Route: 048
     Dates: start: 20080619

REACTIONS (8)
  - ANOREXIA [None]
  - BLOOD AMYLASE INCREASED [None]
  - FATIGUE [None]
  - LIPASE INCREASED [None]
  - MYALGIA [None]
  - PLATELET COUNT DECREASED [None]
  - RASH [None]
  - WHITE BLOOD CELL COUNT DECREASED [None]
